FAERS Safety Report 13474399 (Version 5)
Quarter: 2017Q2

REPORT INFORMATION
  Report Type: Spontaneous
  Country: JP (occurrence: JP)
  Receive Date: 20170424
  Receipt Date: 20170621
  Transmission Date: 20170830
  Serious: Yes (Other)
  Sender: FDA-Public Use
  Company Number: JP-GE HEALTHCARE LIFE SCIENCES-2017CSU000942

PATIENT

DRUGS (5)
  1. COCARL [Concomitant]
     Active Substance: ACETAMINOPHEN
     Indication: PYREXIA
     Dosage: 300 MG, UNK
     Route: 048
  2. CEFTRIAXONE NA [Concomitant]
     Active Substance: CEFTRIAXONE
     Indication: SEPSIS
     Dosage: 1 G, BID
     Dates: start: 20140903, end: 20140911
  3. OMNIPAQUE [Suspect]
     Active Substance: IOHEXOL
     Indication: NEPHRITIS
     Dosage: UNK, SINGLE
     Route: 042
     Dates: start: 20140903, end: 20140903
  4. SOLDEM 1 [Concomitant]
     Active Substance: DEXTROSE\SODIUM CHLORIDE\SODIUM LACTATE
     Indication: SEPSIS
     Dosage: 200 MG, BID
     Dates: start: 20140903
  5. SOLITA-T NO.2 [Concomitant]
     Indication: PRODUCT USED FOR UNKNOWN INDICATION

REACTIONS (1)
  - Delirium febrile [Recovered/Resolved]

NARRATIVE: CASE EVENT DATE: 20140903
